FAERS Safety Report 9761063 (Version 1)
Quarter: 2013Q4

REPORT INFORMATION
  Report Type: Report from Study
  Country: US (occurrence: US)
  Receive Date: 20131216
  Receipt Date: 20131216
  Transmission Date: 20140711
  Serious: Yes (Hospitalization)
  Sender: FDA-Public Use
  Company Number: PHHO2013US015971

PATIENT
  Age: 61 Year
  Sex: Male
  Weight: 59.1 kg

DRUGS (11)
  1. SOM230 [Suspect]
     Indication: HEPATOCELLULAR CARCINOMA
     Dosage: 60 MG, QMO
     Route: 058
     Dates: start: 20131107
  2. CLARITIN [Concomitant]
     Indication: SINUSITIS
     Dosage: 10 MG, UNK
  3. PROTONIX [Concomitant]
     Indication: GASTROOESOPHAGEAL REFLUX DISEASE
     Dosage: 40 MG, UNK
  4. PREVACID [Concomitant]
     Indication: GASTROOESOPHAGEAL REFLUX DISEASE
     Dosage: 1 TABLET, UNK
  5. UROXATRAL [Concomitant]
     Indication: BENIGN PROSTATIC HYPERPLASIA
     Dosage: 10 MG, UNK
  6. AVODART [Concomitant]
     Indication: BENIGN PROSTATIC HYPERPLASIA
     Dosage: 0.5 MG, UNK
  7. ADVAIR [Concomitant]
     Indication: SINUSITIS
     Dosage: 500/50
  8. LANTUS [Concomitant]
     Indication: DIABETES MELLITUS
     Dosage: 100/ML 10 UNITS
  9. HUMALOG [Concomitant]
     Indication: DIABETES MELLITUS
     Dosage: 100/ML 5 UNIT
  10. OXYCODONE [Concomitant]
     Indication: PAIN
     Dosage: 5 MG, UNK
  11. NORVASC [Concomitant]
     Indication: HYPERTENSION
     Dosage: 5 MG, UNK

REACTIONS (1)
  - Hypoglycaemia [Unknown]
